FAERS Safety Report 19008105 (Version 1)
Quarter: 2021Q1

REPORT INFORMATION
  Report Type: Spontaneous
  Country: US (occurrence: US)
  Receive Date: 20210315
  Receipt Date: 20210315
  Transmission Date: 20210420
  Serious: No
  Sender: FDA-Public Use
  Company Number: US-BRISTOL-MYERS SQUIBB COMPANY-BMS-2021-025355

PATIENT
  Sex: Female

DRUGS (3)
  1. ORENCIA [Suspect]
     Active Substance: ABATACEPT
     Indication: PULMONARY FIBROSIS
     Dosage: 125 MILLIGRAM, QWK
     Route: 058
     Dates: start: 202102
  2. ORENCIA [Suspect]
     Active Substance: ABATACEPT
     Indication: PULMONARY FIBROSIS
     Dosage: 125 MILLIGRAM, QWK
     Route: 058
     Dates: start: 202102
  3. OFEV [Suspect]
     Active Substance: NINTEDANIB
     Indication: PRODUCT USED FOR UNKNOWN INDICATION
     Dosage: UNK
     Route: 065

REACTIONS (2)
  - Liver function test increased [Unknown]
  - Intentional product use issue [Unknown]
